FAERS Safety Report 20356314 (Version 1)
Quarter: 2022Q1

REPORT INFORMATION
  Report Type: Spontaneous
  Country: US (occurrence: None)
  Receive Date: 20220120
  Receipt Date: 20220120
  Transmission Date: 20220423
  Serious: Yes (Hospitalization)
  Sender: FDA-Public Use
  Company Number: None

PATIENT
  Sex: Female

DRUGS (5)
  1. GLATIRAMER [Suspect]
     Active Substance: GLATIRAMER
     Indication: Multiple sclerosis
     Dosage: FREQUENCY : 3 TIMES A WEEK;?
     Route: 058
  2. GLATIRAMER [Suspect]
     Active Substance: GLATIRAMER
     Dosage: OTHER QUANTITY : 1 SYRINGE;?FREQUENCY : 3 TIMES A WEEK;?
     Route: 058
  3. COPAXONE [Concomitant]
     Active Substance: GLATIRAMER ACETATE
  4. KEPPRA [Concomitant]
     Active Substance: LEVETIRACETAM
  5. LIPITOR [Concomitant]
     Active Substance: ATORVASTATIN CALCIUM

REACTIONS (1)
  - Chronic obstructive pulmonary disease [None]
